FAERS Safety Report 6191702 (Version 6)
Quarter: 2015Q2

REPORT INFORMATION
  Report Type: Spontaneous
  Country: US (occurrence: US)
  Receive Date: 20061219
  Receipt Date: 20150525
  Transmission Date: 20150821
  Serious: Yes (Hospitalization, Disabling, Other)
  Sender: FDA-Public Use
  Company Number: US-JNJFOC-20061203824

PATIENT
  Age: 55 Year
  Sex: Female
  Weight: 62.14 kg

DRUGS (12)
  1. PREDNISONE. [Suspect]
     Active Substance: PREDNISONE
     Indication: TENDONITIS
  2. ECOTRIN [Concomitant]
     Active Substance: ASPIRIN
  3. DARVOCET [Concomitant]
     Active Substance: ACETAMINOPHEN\PROPOXYPHENE HYDROCHLORIDE
  4. INDERAL [Concomitant]
     Active Substance: PROPRANOLOL HYDROCHLORIDE
  5. ALDACTONE [Concomitant]
     Active Substance: SPIRONOLACTONE
  6. NEXIUM [Concomitant]
     Active Substance: ESOMEPRAZOLE MAGNESIUM
  7. LEVAQUIN [Suspect]
     Active Substance: LEVOFLOXACIN
     Indication: BRONCHITIS
     Route: 048
     Dates: start: 20021024, end: 20021029
  8. LODINE [Concomitant]
     Active Substance: ETODOLAC
  9. PHENERGAN [Concomitant]
     Active Substance: PROMETHAZINE HYDROCHLORIDE
  10. LEVAQUIN [Suspect]
     Active Substance: LEVOFLOXACIN
     Indication: UPPER RESPIRATORY TRACT INFECTION
     Route: 048
     Dates: start: 20021024, end: 20021029
  11. HYDROCHLOROTHIAZIDE. [Concomitant]
     Active Substance: HYDROCHLOROTHIAZIDE
  12. ESTRADIOL. [Concomitant]
     Active Substance: ESTRADIOL

REACTIONS (6)
  - Tendon rupture [Recovered/Resolved with Sequelae]
  - Plantar fasciitis [Unknown]
  - Tendonitis [Recovered/Resolved with Sequelae]
  - Rotator cuff syndrome [Recovering/Resolving]
  - Asthenia [Unknown]
  - Arthropathy [Unknown]

NARRATIVE: CASE EVENT DATE: 20021105
